FAERS Safety Report 5352524-0 (Version None)
Quarter: 2007Q2

REPORT INFORMATION
  Report Type: 
  Country: None (occurrence: None)
  Receive Date: 20070518
  Receipt Date: 20061206
  Transmission Date: 20071010
  Serious: Yes (Death, Other)
  Sender: FDA-Public Use
  Company Number: DZ-2006-038181

PATIENT
  Age: 78 Year
  Sex: Male

DRUGS (2)
  1. QUADRAMET [Suspect]
     Indication: METASTASES TO BONE
     Dosage: 1 MCI/KG, 37MBQ/KG 1 DOSE, INTRAVENOUS
     Route: 042
  2. TECHNETIUM TC 99M METHYLENE DIPHOSPHONATE [Concomitant]

REACTIONS (3)
  - METASTASES TO ABDOMINAL CAVITY [None]
  - PAIN [None]
  - THROMBOCYTOPENIA [None]
